FAERS Safety Report 6284152-7 (Version None)
Quarter: 2009Q3

REPORT INFORMATION
  Report Type: 
  Country: None (occurrence: None)
  Receive Date: 20090722
  Receipt Date: 20090708
  Transmission Date: 20100115
  Serious: Yes (Death)
  Sender: FDA-Public Use
  Company Number: POMP-1000664

PATIENT
  Age: 5 Month
  Sex: Female
  Weight: 5.5 kg

DRUGS (1)
  1. MYOZYME [Suspect]
     Indication: GLYCOGEN STORAGE DISEASE TYPE II
     Dosage: 110 U, Q2W, INTRAVENOUS
     Route: 042
     Dates: start: 20090602, end: 20090614

REACTIONS (3)
  - CARDIOMEGALY [None]
  - DISEASE PROGRESSION [None]
  - GLYCOGEN STORAGE DISEASE TYPE II [None]
